FAERS Safety Report 4680683-1 (Version None)
Quarter: 2005Q2

REPORT INFORMATION
  Report Type: 
  Country: None (occurrence: None)
  Receive Date: 20050603
  Receipt Date: 20050526
  Transmission Date: 20051028
  Serious: Yes (Life-Threatening)
  Sender: FDA-Public Use
  Company Number: 2005AP03094

PATIENT
  Sex: Male

DRUGS (4)
  1. DIPRIVAN [Suspect]
     Indication: GENERAL ANAESTHESIA
     Route: 042
     Dates: start: 20041101, end: 20041101
  2. INOVAN [Suspect]
     Route: 042
     Dates: start: 20041101, end: 20041101
  3. FENTANEST [Suspect]
     Route: 042
     Dates: start: 20041101, end: 20041101
  4. MUSCULAX [Suspect]
     Route: 042
     Dates: start: 20041101, end: 20041101

REACTIONS (3)
  - METABOLIC ACIDOSIS [None]
  - RESPIRATORY FAILURE [None]
  - RHABDOMYOLYSIS [None]
